FAERS Safety Report 9370108 (Version 1)
Quarter: 2013Q2

REPORT INFORMATION
  Report Type: Spontaneous
  Country: JP (occurrence: JP)
  Receive Date: 20130626
  Receipt Date: 20130626
  Transmission Date: 20140414
  Serious: Yes (Other)
  Sender: FDA-Public Use
  Company Number: PHHY2013JP065049

PATIENT
  Sex: 0
  Weight: 2.39 kg

DRUGS (2)
  1. CICLOSPORIN [Suspect]
     Dosage: (MATERNAL DOSE: 50MG)
     Route: 064
  2. PREDNISOLONE [Suspect]
     Dosage: MATERNAL DOSE: 6.125MG
     Route: 064

REACTIONS (2)
  - Low birth weight baby [Unknown]
  - Foetal exposure during pregnancy [Unknown]
